FAERS Safety Report 5739456-0 (Version None)
Quarter: 2008Q2

REPORT INFORMATION
  Report Type: 
  Country: None (occurrence: None)
  Receive Date: 20080513
  Receipt Date: 20080505
  Transmission Date: 20081010
  Serious: Yes (Other)
  Sender: FDA-Public Use
  Company Number: 2008SP003471

PATIENT
  Age: 20 Year
  Sex: Male

DRUGS (6)
  1. DESLORATADINE [Suspect]
     Indication: PROPHYLAXIS
     Dosage: 10 MG; PO
     Route: 048
     Dates: start: 20080212, end: 20080212
  2. DESLORATADINE [Suspect]
     Indication: PROPHYLAXIS
     Dosage: 10 MG; PO
     Route: 048
     Dates: start: 20080307, end: 20080307
  3. REMICADE [Suspect]
     Indication: CROHN'S DISEASE
     Dosage: 400 MG; IV
     Route: 042
     Dates: start: 20080129, end: 20080307
  4. SOLU-CORTEF [Suspect]
     Indication: PROPHYLAXIS
     Dosage: 200 MG
     Dates: start: 20080212, end: 20080212
  5. SOLU-CORTEF [Suspect]
     Indication: PROPHYLAXIS
     Dosage: 200 MG
     Dates: start: 20080307, end: 20080307
  6. SOLU-CORTEF [Concomitant]

REACTIONS (5)
  - ANAPHYLACTOID REACTION [None]
  - CHEST DISCOMFORT [None]
  - FLUSHING [None]
  - HEART RATE INCREASED [None]
  - INFUSION RELATED REACTION [None]
